FAERS Safety Report 12401299 (Version 1)
Quarter: 2016Q2

REPORT INFORMATION
  Report Type: Spontaneous
  Country: JP (occurrence: JP)
  Receive Date: 20160525
  Receipt Date: 20160525
  Transmission Date: 20160815
  Serious: Yes (Hospitalization)
  Sender: FDA-Public Use
  Company Number: JP-PSKUSFDA-2016-JP-0122

PATIENT
  Age: 67 Year
  Sex: Female

DRUGS (1)
  1. TOREMIFENE (UNKNOWN) [Suspect]
     Active Substance: TOREMIFENE CITRATE
     Indication: BREAST CANCER METASTATIC
     Dosage: HIGH DOSE

REACTIONS (2)
  - Drug-induced liver injury [None]
  - Hepatic failure [None]
